FAERS Safety Report 5426435-6 (Version None)
Quarter: 2007Q3

REPORT INFORMATION
  Report Type: 
  Country: None (occurrence: None)
  Receive Date: 20070827
  Receipt Date: 20070815
  Transmission Date: 20080115
  Serious: Yes (Life-Threatening, Other)
  Sender: FDA-Public Use
  Company Number: GB-PFIZER INC-2007022411

PATIENT
  Age: 46 Year
  Sex: Male
  Weight: 72 kg

DRUGS (1)
  1. CHAMPIX [Suspect]
     Indication: EX-SMOKER
     Route: 048
     Dates: start: 20070302, end: 20070315

REACTIONS (3)
  - AMNESIA [None]
  - HEAD INJURY [None]
  - ROAD TRAFFIC ACCIDENT [None]
